FAERS Safety Report 5913063-9 (Version None)
Quarter: 2008Q4

REPORT INFORMATION
  Report Type: 
  Country: None (occurrence: None)
  Receive Date: 20081008
  Receipt Date: 20081008
  Transmission Date: 20090506
  Serious: No
  Sender: FDA-Public Use
  Company Number: None

PATIENT
  Sex: Female
  Weight: 45.8133 kg

DRUGS (2)
  1. YASMIN [Suspect]
     Indication: CONTRACEPTION
     Dates: start: 20080724, end: 20080929
  2. YASMIN [Suspect]
     Indication: MOOD SWINGS
     Dates: start: 20080724, end: 20080929

REACTIONS (3)
  - HEADACHE [None]
  - MOOD SWINGS [None]
  - PRODUCT QUALITY ISSUE [None]
